FAERS Safety Report 14345617 (Version 2)
Quarter: 2018Q1

REPORT INFORMATION
  Report Type: Report from Study
  Country: BR (occurrence: BR)
  Receive Date: 20180103
  Receipt Date: 20180117
  Transmission Date: 20180509
  Serious: Yes (Hospitalization)
  Sender: FDA-Public Use
  Company Number: PHHY2017BR197545

PATIENT
  Sex: Male
  Weight: 32 kg

DRUGS (8)
  1. CARBAMAZEPINE. [Concomitant]
     Active Substance: CARBAMAZEPINE
     Indication: SEIZURE
     Dosage: 0.5 DF, BID
     Route: 048
  2. MAREVAN [Concomitant]
     Active Substance: WARFARIN SODIUM
     Indication: ANTICOAGULANT THERAPY
     Dosage: 1 DF, QD
     Route: 048
  3. GARDENAL [Concomitant]
     Active Substance: PHENOBARBITAL
     Indication: SEIZURE
     Dosage: 50 DRP, BID
     Route: 048
  4. HYDROXYUREA. [Concomitant]
     Active Substance: HYDROXYUREA
     Indication: SICKLE CELL ANAEMIA
     Dosage: 100 MG IN ONE DAY AND THE OTHER 500 MG
     Route: 048
  5. PENICILLIN [Concomitant]
     Active Substance: PENICILLIN
     Indication: SPLEEN OPERATION
     Dosage: 3.5 ML, BID
     Route: 048
  6. EXJADE [Suspect]
     Active Substance: DEFERASIROX
     Indication: IRON OVERLOAD
     Dosage: 625 MG, (ONE OF 500 MG AND ONE OF 125 MG), QD
     Route: 048
     Dates: start: 2011
  7. FOLIC ACID. [Concomitant]
     Active Substance: FOLIC ACID
     Indication: PRODUCT USED FOR UNKNOWN INDICATION
     Dosage: 1 DF, QOD
     Route: 048
  8. CLEXANE [Concomitant]
     Active Substance: ENOXAPARIN SODIUM
     Indication: ANTICOAGULANT THERAPY
     Dosage: 2 INJECTION A DAY
     Route: 048

REACTIONS (1)
  - Endocarditis [Recovered/Resolved]
